FAERS Safety Report 22185579 (Version 2)
Quarter: 2023Q2

REPORT INFORMATION
  Report Type: Report from Study
  Country: US (occurrence: US)
  Receive Date: 20230407
  Receipt Date: 20230502
  Transmission Date: 20230721
  Serious: Yes (Hospitalization, Other)
  Sender: FDA-Public Use
  Company Number: US-KOREA IPSEN Pharma-2018-00321

PATIENT
  Age: 77 Year
  Sex: Female
  Weight: 50.5 kg

DRUGS (26)
  1. SOMATULINE DEPOT [Suspect]
     Active Substance: LANREOTIDE ACETATE
     Indication: Neuroendocrine tumour
     Dosage: 90 MG
     Route: 058
     Dates: start: 20171204, end: 20171224
  2. PEMBROLIZUMAB [Suspect]
     Active Substance: PEMBROLIZUMAB
     Indication: Neuroendocrine tumour
     Route: 042
     Dates: start: 20171204, end: 20171224
  3. CIPRO [Suspect]
     Active Substance: CIPROFLOXACIN HYDROCHLORIDE
     Indication: Diarrhoea
  4. FLAGYL [Suspect]
     Active Substance: METRONIDAZOLE\METRONIDAZOLE HYDROCHLORIDE
     Indication: Diarrhoea
  5. PROBIOTIC-10 [Concomitant]
     Route: 048
  6. HERBALS\TURMERIC [Concomitant]
     Active Substance: HERBALS\TURMERIC
  7. MULLEIN [Concomitant]
     Indication: Lung disorder
  8. VITAMIN C [Concomitant]
     Active Substance: ASCORBIC ACID
     Route: 048
  9. VITAMIN B COMPLEX [Concomitant]
     Active Substance: CYANOCOBALAMIN\DEXPANTHENOL\NIACINAMIDE\PYRIDOXINE HYDROCHLORIDE\RIBOFLAVIN 5^-PHOSPHATE SODIUM\THIA
     Route: 048
  10. CRANBERRY CONCENTRATE [Concomitant]
     Active Substance: CRANBERRY CONCENTRATE
  11. XGEVA [Concomitant]
     Active Substance: DENOSUMAB
     Dosage: 120 MG/0.7 ML (70 MG/ML)
     Route: 058
     Dates: start: 20160922
  12. FLAXSEED [Concomitant]
     Active Substance: FLAX SEED
  13. SYNTHROID [Concomitant]
     Active Substance: LEVOTHYROXINE SODIUM
     Route: 048
  14. MELATONIN [Concomitant]
     Active Substance: MELATONIN
     Route: 048
  15. DIETARY SUPPLEMENT\HERBALS\MILK THISTLE [Concomitant]
     Active Substance: MILK THISTLE
     Route: 048
  16. LOVAZA [Concomitant]
     Active Substance: OMEGA-3-ACID ETHYL ESTERS
     Route: 048
  17. TURMERIC [Concomitant]
     Active Substance: TURMERIC
     Route: 048
  18. DEGLYCYRRHIZINATED [Concomitant]
     Indication: Gastrooesophageal reflux disease
  19. CALTRATE 600+D [Concomitant]
     Dosage: 600 MG (1500 MG) - 200 UNIT
     Route: 048
  20. CITRACAL+D [Concomitant]
     Dosage: 315 MG - 200 UNIT, TAKEN WITH MEALS
     Route: 048
  21. COLACE [Concomitant]
     Active Substance: DOCUSATE SODIUM
     Dosage: 50 MG/5 ML
     Route: 048
  22. ADVIL (MOTRIN) [Concomitant]
     Route: 048
  23. SANDOSTATIN LAR DEPOT [Concomitant]
     Active Substance: OCTREOTIDE ACETATE
     Route: 030
     Dates: start: 201707
  24. SANDOSTATIN LAR DEPOT [Concomitant]
     Active Substance: OCTREOTIDE ACETATE
     Dosage: NOT REPORTED
     Route: 030
     Dates: end: 201707
  25. VITAMIN B COMPLEX 100 2-HERBS [Concomitant]
     Route: 048
  26. VITAMIN E [Concomitant]
     Active Substance: .ALPHA.-TOCOPHEROL
     Route: 048

REACTIONS (12)
  - Colitis [Recovered/Resolved]
  - Diarrhoea [Recovering/Resolving]
  - Colitis [Recovered/Resolved with Sequelae]
  - Haematochezia [Unknown]
  - Abdominal pain [Unknown]
  - Faeces discoloured [Unknown]
  - Diarrhoea [Recovered/Resolved]
  - Abdominal distension [Unknown]
  - Chest pain [Unknown]
  - Gastrooesophageal reflux disease [Unknown]
  - Back pain [Unknown]
  - Off label use [Unknown]

NARRATIVE: CASE EVENT DATE: 20171201
